FAERS Safety Report 5492157-9 (Version None)
Quarter: 2007Q4

REPORT INFORMATION
  Report Type: 
  Country: None (occurrence: None)
  Receive Date: 20071015
  Receipt Date: 20070629
  Transmission Date: 20080405
  Serious: No
  Sender: FDA-Public Use
  Company Number: 2007SP002414

PATIENT
  Age: 57 Year
  Sex: Female
  Weight: 77.1115 kg

DRUGS (4)
  1. LUNESTA [Suspect]
     Indication: SLEEP DISORDER
     Dosage: 2 MG;HS; ORAL
     Route: 048
     Dates: start: 20070501, end: 20070501
  2. LUNESTA [Suspect]
     Indication: SLEEP DISORDER
     Dosage: 2 MG;HS; ORAL
     Route: 048
     Dates: start: 20070501, end: 20070601
  3. LUNESTA [Suspect]
     Indication: SLEEP DISORDER
     Dosage: 2 MG;HS; ORAL
     Route: 048
     Dates: start: 20070622, end: 20070624
  4. MIRTAZAPINE [Concomitant]

REACTIONS (9)
  - ASTHENIA [None]
  - CHILLS [None]
  - DIZZINESS [None]
  - FATIGUE [None]
  - MIDDLE INSOMNIA [None]
  - NAUSEA [None]
  - RETCHING [None]
  - STOMACH DISCOMFORT [None]
  - VOMITING [None]
